FAERS Safety Report 18695743 (Version 1)
Quarter: 2021Q1

REPORT INFORMATION
  Report Type: Spontaneous
  Country: CN (occurrence: CN)
  Receive Date: 20210104
  Receipt Date: 20210104
  Transmission Date: 20210419
  Serious: Yes (Other)
  Sender: FDA-Public Use
  Company Number: CN-BAXTER-2020BAX026913

PATIENT
  Age: 26 Year
  Sex: Female
  Weight: 47 kg

DRUGS (6)
  1. PHARMORUBICIN [Suspect]
     Active Substance: EPIRUBICIN
     Indication: NON-HODGKIN^S LYMPHOMA
     Dosage: 0.9% SODIUM CHLORIDE INJECTION 500ML + PHARMORUBICIN FOR INJECTION 108 MG
     Route: 041
     Dates: start: 20201128, end: 20201128
  2. 0.9% SODIUM CHLORIDE INJECTION [Suspect]
     Active Substance: SODIUM CHLORIDE
     Indication: MEDICATION DILUTION
     Dosage: 0.9% SODIUM CHLORIDE INJECTION 100ML + ENDOXAN 440 MG
     Route: 041
     Dates: start: 20201125, end: 20201127
  3. ENDOXAN [Suspect]
     Active Substance: CYCLOPHOSPHAMIDE
     Indication: NON-HODGKIN^S LYMPHOMA
     Dosage: 0.9% SODIUM CHLORIDE INJECTION 100ML + ENDOXAN FOR INJECTION 440 MG
     Route: 041
     Dates: start: 20201125, end: 20201127
  4. 0.9% SODIUM CHLORIDE INJECTION [Suspect]
     Active Substance: SODIUM CHLORIDE
     Dosage: 0.9% SODIUM CHLORIDE INJECTION 500ML + PHARMORUBICIN FOR INJECTION 108 MG
     Route: 041
     Dates: start: 20201128, end: 20201128
  5. XIAIKE [Suspect]
     Active Substance: VINDESINE
     Indication: NON-HODGKIN^S LYMPHOMA
     Dosage: 0.9% SODIUM CHLORIDE INJECTION 30ML + VINDESINE SULFATE FOR INJECTION 4 MG
     Route: 041
     Dates: start: 20201128, end: 20201128
  6. 0.9% SODIUM CHLORIDE INJECTION [Suspect]
     Active Substance: SODIUM CHLORIDE
     Dosage: 0.9% SODIUM CHLORIDE INJECTION 30ML + XIAIKE FOR INJECTION 4 MG
     Route: 041
     Dates: start: 20201128, end: 20201128

REACTIONS (1)
  - Myelosuppression [Recovering/Resolving]

NARRATIVE: CASE EVENT DATE: 20201201
